FAERS Safety Report 4600855-1 (Version None)
Quarter: 2005Q1

REPORT INFORMATION
  Report Type: 
  Country: None (occurrence: None)
  Receive Date: 20050304
  Receipt Date: 20050222
  Transmission Date: 20050727
  Serious: Yes (Disabling)
  Sender: FDA-Public Use
  Company Number: 2005UW03077

PATIENT
  Age: 80 Year
  Sex: Female
  Weight: 77 kg

DRUGS (12)
  1. NOLVADEX [Suspect]
     Indication: BREAST CANCER
     Dosage: 20 MG QD PO
     Route: 048
     Dates: start: 20010614
  2. CELEBREX [Concomitant]
  3. PANTOPRAZOLE SODIUM [Concomitant]
  4. COLACE [Concomitant]
  5. APO-AMILZIDE [Concomitant]
  6. METOPROLOL [Concomitant]
  7. POTASSIUM CHLORIDE [Concomitant]
  8. VITALUX [Concomitant]
  9. RANITIDINE [Concomitant]
  10. LYCOPENE [Concomitant]
  11. VITAMIN E [Concomitant]
  12. TYLENOL (CAPLET) [Concomitant]

REACTIONS (2)
  - FALL [None]
  - RADIUS FRACTURE [None]
